FAERS Safety Report 12598696 (Version 1)
Quarter: 2016Q3

REPORT INFORMATION
  Report Type: Spontaneous
  Country: US (occurrence: US)
  Receive Date: 20160726
  Receipt Date: 20160726
  Transmission Date: 20161109
  Serious: Yes (Other)
  Sender: FDA-Public Use
  Company Number: US-AMGEN-USASP2016095100

PATIENT
  Age: 54 Year
  Sex: Female

DRUGS (1)
  1. ENBREL [Suspect]
     Active Substance: ETANERCEPT
     Indication: PRODUCT USED FOR UNKNOWN INDICATION
     Dosage: UNK
     Route: 065

REACTIONS (6)
  - Confusional state [Unknown]
  - Cerebral disorder [Unknown]
  - Inappropriate schedule of drug administration [Unknown]
  - Mental impairment [Unknown]
  - Dysarthria [Unknown]
  - Somnolence [Unknown]

NARRATIVE: CASE EVENT DATE: 20160720
